FAERS Safety Report 7664851 (Version 3)
Quarter: 2013Q2

REPORT INFORMATION
  Report Type: Spontaneous
  Country: US (occurrence: US)
  Receive Date: 20101111
  Receipt Date: 20130418
  Transmission Date: 20140414
  Serious: Yes (Other)
  Sender: FDA-Public Use
  Company Number: US-ROCHE-718749

PATIENT
  Age: 14 Year
  Sex: Male
  Weight: 170 kg

DRUGS (2)
  1. ACCUTANE [Suspect]
     Indication: ACNE
     Route: 065
     Dates: start: 199908, end: 200004
  2. TYLENOL [Concomitant]
     Indication: HEADACHE
     Route: 065

REACTIONS (6)
  - Crohn^s disease [Unknown]
  - Gastrointestinal injury [Unknown]
  - Inflammatory bowel disease [Unknown]
  - Irritable bowel syndrome [Unknown]
  - Hepatic enzyme increased [Recovered/Resolved]
  - Tendonitis [Unknown]
